FAERS Safety Report 15932341 (Version 1)
Quarter: 2019Q1

REPORT INFORMATION
  Report Type: Spontaneous
  Country: BR (occurrence: BR)
  Receive Date: 20190207
  Receipt Date: 20190207
  Transmission Date: 20190417
  Serious: Yes (Other)
  Sender: FDA-Public Use
  Company Number: BR-TORRENT-00004853

PATIENT
  Age: 45 Year
  Sex: Female
  Weight: 76 kg

DRUGS (2)
  1. QUETIAPINE. [Concomitant]
     Active Substance: QUETIAPINE
     Indication: PSYCHOTIC DISORDER
     Dosage: ONE TABLET AT NIGHT
     Route: 048
     Dates: start: 201809
  2. VENLIFT OD 150 MG [Suspect]
     Active Substance: VENLAFAXINE HYDROCHLORIDE
     Indication: DEPRESSION
     Dosage: ONE CAPSULE IN THE MORNING
     Route: 048
     Dates: start: 201809, end: 20190124

REACTIONS (4)
  - Suicidal ideation [Not Recovered/Not Resolved]
  - Affect lability [Not Recovered/Not Resolved]
  - Withdrawal syndrome [Not Recovered/Not Resolved]
  - Crying [Not Recovered/Not Resolved]

NARRATIVE: CASE EVENT DATE: 20190127
